FAERS Safety Report 8453634 (Version 4)
Quarter: 2012Q4

REPORT INFORMATION
  Report Type: 
  Country: JP (occurrence: JP)
  Receive Date: 20120312
  Receipt Date: 20121031
  Transmission Date: 20130627
  Serious: Yes (Hospitalization, Other)
  Sender: FDA-Public Use
  Company Number: JP-ABBOTT-12P-087-0906972-00

PATIENT
  Age: 43 Year
  Sex: Male
  Weight: 62.9 kg

DRUGS (13)
  1. HUMIRA [Suspect]
     Indication: CROHN^S DISEASE
     Route: 058
     Dates: start: 20111210, end: 20111210
  2. HUMIRA [Suspect]
  3. HUMIRA [Suspect]
     Dates: end: 20120114
  4. LANSOPRAZOLE [Concomitant]
     Indication: PROPHYLAXIS AGAINST GASTROINTESTINAL ULCER
     Route: 048
     Dates: start: 20110929
  5. SODIUM FERROUS CITRATE [Concomitant]
     Indication: ANAEMIA
     Route: 048
     Dates: start: 20110527
  6. HERBAL MEDICINE (DAIKENCHUTO) [Concomitant]
     Indication: PROPHYLAXIS
     Route: 048
     Dates: start: 20110527
  7. HERBAL MEDICINE (DAIKENCHUTO) [Concomitant]
     Indication: INTESTINAL OBSTRUCTION
  8. MESALAZINE [Concomitant]
     Indication: CROHN^S DISEASE
     Route: 048
     Dates: start: 20110527
  9. POLAPREZINC [Concomitant]
     Indication: PROPHYLAXIS AGAINST GASTROINTESTINAL ULCER
     Dosage: 150mg daily
     Route: 048
     Dates: start: 20111210
  10. URSODEOXYCHOLIC ACID [Concomitant]
     Indication: HEPATIC FUNCTION ABNORMAL
     Dates: start: 20110527
  11. FOLIC ACID [Concomitant]
     Indication: BLOOD FOLATE DECREASED
     Dates: start: 20111210
  12. PARENTERAL NUTRITION [Concomitant]
     Indication: CROHN^S DISEASE
     Dates: start: 20110725
  13. PARENTERAL NUTRITION [Concomitant]
     Dates: start: 20110725

REACTIONS (5)
  - Pyrexia [Recovered/Resolved]
  - Agranulocytosis [Recovered/Resolved]
  - Agranulocytosis [Recovered/Resolved]
  - Influenza [Recovered/Resolved]
  - Pyrexia [Unknown]
